FAERS Safety Report 5302358-8 (Version None)
Quarter: 2007Q2

REPORT INFORMATION
  Report Type: 
  Country: None (occurrence: None)
  Receive Date: 20070419
  Receipt Date: 20070411
  Transmission Date: 20071010
  Serious: Yes (Other)
  Sender: FDA-Public Use
  Company Number: US-BRACCO-BDI-009361

PATIENT
  Age: 60 Year
  Sex: Female

DRUGS (1)
  1. MULTIHANCE [Suspect]
     Route: 042

REACTIONS (3)
  - FEELING ABNORMAL [None]
  - NAUSEA [None]
  - RESPIRATORY ARREST [None]
